FAERS Safety Report 25194472 (Version 1)
Quarter: 2025Q2

REPORT INFORMATION
  Report Type: Other
  Country: IT (occurrence: IT)
  Receive Date: 20250414
  Receipt Date: 20250414
  Transmission Date: 20250716
  Serious: Yes (Other)
  Sender: ITALFARMACO
  Company Number: IT-ITALFARMACO SPA-2174864

PATIENT
  Age: 66 Year
  Sex: Male

DRUGS (2)
  1. RILUZOLE [Suspect]
     Active Substance: RILUZOLE
     Indication: Myasthenia gravis
  2. PYRIDOSTIGMINE [Concomitant]
     Active Substance: PYRIDOSTIGMINE

REACTIONS (2)
  - Pancreatitis [Recovering/Resolving]
  - Off label use [Unknown]
